FAERS Safety Report 9765157 (Version 1)
Quarter: 2013Q4

REPORT INFORMATION
  Report Type: Spontaneous
  Country: US (occurrence: US)
  Receive Date: 20131217
  Receipt Date: 20131217
  Transmission Date: 20140711
  Serious: No
  Sender: FDA-Public Use
  Company Number: US-GLAXOSMITHKLINE-A1008834A

PATIENT
  Age: 69 Year
  Sex: Female

DRUGS (2)
  1. SORIATANE [Suspect]
     Indication: SKIN PAPILLOMA
     Route: 048
     Dates: start: 20111016
  2. ESTRADIOL [Concomitant]

REACTIONS (7)
  - Weight increased [Not Recovered/Not Resolved]
  - Pruritus [Unknown]
  - Dry skin [Unknown]
  - Madarosis [Unknown]
  - Nasal dryness [Unknown]
  - Lip dry [Unknown]
  - Pruritus [Unknown]
